FAERS Safety Report 8382727-2 (Version None)
Quarter: 2012Q2

REPORT INFORMATION
  Report Type: 
  Country: None (occurrence: None)
  Receive Date: 20120524
  Receipt Date: 20120302
  Transmission Date: 20120825
  Serious: No
  Sender: FDA-Public Use
  Company Number: US-ALLERGAN-1203085US

PATIENT
  Age: 63 Year
  Sex: Female

DRUGS (1)
  1. LASTACAFT [Suspect]
     Indication: DRY EYE
     Dosage: UNK
     Route: 047

REACTIONS (3)
  - EYE PAIN [None]
  - EYE PRURITUS [None]
  - INCORRECT DOSE ADMINISTERED [None]
